FAERS Safety Report 17370033 (Version 3)
Quarter: 2021Q4

REPORT INFORMATION
  Report Type: Spontaneous
  Country: US (occurrence: US)
  Receive Date: 20200205
  Receipt Date: 20211214
  Transmission Date: 20220303
  Serious: No
  Sender: FDA-Public Use
  Company Number: None

PATIENT
  Sex: Female

DRUGS (2)
  1. TAFINLAR [Suspect]
     Active Substance: DABRAFENIB MESYLATE
     Indication: Thyroid cancer
     Dosage: 150 MG, BID
     Route: 048
     Dates: start: 20191228, end: 20210827
  2. MEKINIST [Suspect]
     Active Substance: TRAMETINIB DIMETHYL SULFOXIDE
     Indication: Thyroid cancer
     Dosage: 2 MG, QD
     Route: 048
     Dates: start: 202102, end: 20211019

REACTIONS (3)
  - Nausea [Unknown]
  - Vomiting [Unknown]
  - Bronchitis [Unknown]
